FAERS Safety Report 11322489 (Version 2)
Quarter: 2015Q3

REPORT INFORMATION
  Report Type: Spontaneous
  Country: US (occurrence: US)
  Receive Date: 20150730
  Receipt Date: 20150902
  Transmission Date: 20151125
  Serious: Yes (Other)
  Sender: FDA-Public Use
  Company Number: US-PFIZER INC-2015249829

PATIENT
  Age: 30 Year
  Sex: Female
  Weight: 57 kg

DRUGS (2)
  1. DEPO-PROVERA [Suspect]
     Active Substance: MEDROXYPROGESTERONE ACETATE
     Indication: CONTRACEPTION
     Dosage: 104 MG, EVERY 3 MONTHS
     Route: 058
     Dates: start: 20131008
  2. DEPO-PROVERA [Suspect]
     Active Substance: MEDROXYPROGESTERONE ACETATE
     Dosage: 104 MG, EVERY 3 MONTHS
     Route: 058
     Dates: start: 20141103

REACTIONS (4)
  - Injection site discolouration [Recovered/Resolved with Sequelae]
  - Injection site nodule [Not Recovered/Not Resolved]
  - Product quality issue [Not Recovered/Not Resolved]
  - Injection site reaction [Not Recovered/Not Resolved]
